FAERS Safety Report 19926783 (Version 1)
Quarter: 2021Q4

REPORT INFORMATION
  Report Type: Spontaneous
  Country: NL (occurrence: NL)
  Receive Date: 20211006
  Receipt Date: 20211006
  Transmission Date: 20220303
  Serious: Yes (Hospitalization)
  Sender: FDA-Public Use
  Company Number: NL-UCBSA-2021046217

PATIENT
  Sex: Male

DRUGS (2)
  1. VIMPAT [Suspect]
     Active Substance: LACOSAMIDE
     Indication: Epilepsy
     Dosage: UNK DOSE
     Dates: start: 202109, end: 2021
  2. VIMPAT [Suspect]
     Active Substance: LACOSAMIDE
     Dosage: 100 MILLIGRAM, 2X/DAY (BID)
     Dates: start: 2021

REACTIONS (8)
  - Hospitalisation [Unknown]
  - Diarrhoea [Unknown]
  - Vision blurred [Unknown]
  - Diplopia [Unknown]
  - Myalgia [Unknown]
  - Gait disturbance [Unknown]
  - Memory impairment [Unknown]
  - Speech disorder [Unknown]
